FAERS Safety Report 6710388-4 (Version None)
Quarter: 2010Q2

REPORT INFORMATION
  Report Type: 
  Country: None (occurrence: None)
  Receive Date: 20100504
  Receipt Date: 20100503
  Transmission Date: 20101027
  Serious: Yes (Hospitalization)
  Sender: FDA-Public Use
  Company Number: GXKR2010DE04868

PATIENT
  Age: 89 Year
  Sex: Female
  Weight: 70 kg

DRUGS (8)
  1. SPIRONOLACTON (NGX) [Suspect]
     Indication: HYPERTENSION
     Dosage: 100 MG, QD
     Route: 048
     Dates: start: 20090925, end: 20100320
  2. DIGITOXIN [Suspect]
     Indication: TACHYARRHYTHMIA
     Dosage: 0.07 UG, QD
     Route: 048
     Dates: start: 20090821, end: 20100320
  3. RASILEZ HCT [Suspect]
     Indication: HYPERTENSION
     Dosage: 300 MG, QD
     Route: 048
     Dates: start: 20100223, end: 20100320
  4. EXFORGE HCT [Suspect]
     Indication: HYPERTENSION
     Dosage: 1 DF DAILY (10 MG AMLODIPINE, 160 MG VALSARTAN, 12.5 MG HCT)
     Route: 048
     Dates: start: 20100223
  5. BIKALM [Concomitant]
     Indication: SLEEP DISORDER
     Dosage: 5 MG, QD
     Route: 048
  6. MIRTAZAPINE [Concomitant]
     Indication: DEPRESSION
     Dosage: 15 MG, QD
     Route: 048
     Dates: start: 20090901
  7. METOHEXAL [Concomitant]
     Indication: HYPERTENSION
     Dosage: UNK
     Route: 048
     Dates: end: 20100324
  8. PANTOZOL [Concomitant]
     Indication: DYSPEPSIA
     Dosage: 20 MG, QD
     Route: 048

REACTIONS (2)
  - HALLUCINATION [None]
  - HYPERKALAEMIA [None]
